FAERS Safety Report 8613301 (Version 3)
Quarter: 2020Q1

REPORT INFORMATION
  Report Type: Spontaneous
  Country: US (occurrence: US)
  Receive Date: 20120613
  Receipt Date: 20200320
  Transmission Date: 20200409
  Serious: Yes (Other)
  Sender: FDA-Public Use
  Company Number: US-ASTRAZENECA-2012SE36422

PATIENT
  Age: 721 Month
  Sex: Male
  Weight: 98.9 kg

DRUGS (3)
  1. NEXIUM [Suspect]
     Active Substance: ESOMEPRAZOLE MAGNESIUM
     Indication: GASTROOESOPHAGEAL REFLUX DISEASE
     Dosage: 40.0MG UNKNOWN
     Route: 048
     Dates: start: 2011
  2. NEXIUM GENERIC [Suspect]
     Active Substance: ESOMEPRAZOLE
     Dosage: 40.0MG UNKNOWN
     Route: 048
  3. CELEBREX [Concomitant]
     Active Substance: CELECOXIB

REACTIONS (9)
  - Fall [Unknown]
  - Vomiting [Unknown]
  - Taste disorder [Unknown]
  - Accident at work [Unknown]
  - Abdominal discomfort [Not Recovered/Not Resolved]
  - Physical disability [Unknown]
  - Dyspepsia [Not Recovered/Not Resolved]
  - Product dose omission [Not Recovered/Not Resolved]
  - Breath odour [Unknown]

NARRATIVE: CASE EVENT DATE: 201506
